FAERS Safety Report 12649971 (Version 2)
Quarter: 2016Q3

REPORT INFORMATION
  Report Type: Spontaneous
  Country: JP (occurrence: JP)
  Receive Date: 20160813
  Receipt Date: 20160817
  Transmission Date: 20161109
  Serious: Yes (Other)
  Sender: FDA-Public Use
  Company Number: JP-AMGEN-JPNSP2016105619

PATIENT

DRUGS (1)
  1. G-LASTA [Suspect]
     Active Substance: PEGFILGRASTIM
     Indication: PRODUCT USED FOR UNKNOWN INDICATION
     Dosage: UNK
     Route: 065

REACTIONS (5)
  - Impaired healing [Unknown]
  - Wound infection [Unknown]
  - Bone pain [Unknown]
  - Decreased appetite [Unknown]
  - Malaise [Unknown]
